FAERS Safety Report 10100407 (Version 1)
Quarter: 2014Q2

REPORT INFORMATION
  Report Type: Spontaneous
  Country: US (occurrence: US)
  Receive Date: 20140423
  Receipt Date: 20140423
  Transmission Date: 20141212
  Serious: No
  Sender: FDA-Public Use
  Company Number: US-MYLANLABS-2014S1000250

PATIENT
  Age: 52 Year
  Sex: Male
  Weight: 108.86 kg

DRUGS (3)
  1. ALFUZOSIN HYDROCHLORIDE EXTENDED-RELEASE TABLETS [Suspect]
     Indication: BENIGN PROSTATIC HYPERPLASIA
     Route: 048
     Dates: start: 20131215
  2. VENLAFAXINE [Concomitant]
  3. BUSPAR [Concomitant]

REACTIONS (2)
  - Drug effect decreased [Not Recovered/Not Resolved]
  - Nocturia [Not Recovered/Not Resolved]
